FAERS Safety Report 9353644 (Version 1)
Quarter: 2013Q2

REPORT INFORMATION
  Report Type: Spontaneous
  Country: US (occurrence: US)
  Receive Date: 20130618
  Receipt Date: 20130618
  Transmission Date: 20140414
  Serious: No
  Sender: FDA-Public Use
  Company Number: US-009507513-1306USA006486

PATIENT
  Age: 80 Year
  Sex: Female

DRUGS (1)
  1. AZASITE [Suspect]
     Indication: EYE INFECTION
     Dosage: UNK
     Route: 047
     Dates: start: 20130606, end: 20130609

REACTIONS (3)
  - Ocular hyperaemia [Recovered/Resolved]
  - Eye swelling [Recovered/Resolved]
  - Eye pruritus [Recovered/Resolved]
